FAERS Safety Report 10506944 (Version 2)
Quarter: 2014Q4

REPORT INFORMATION
  Report Type: Spontaneous
  Country: FR (occurrence: FR)
  Receive Date: 20141009
  Receipt Date: 20141016
  Transmission Date: 20150528
  Serious: Yes (Other)
  Sender: FDA-Public Use
  Company Number: FR-ELI_LILLY_AND_COMPANY-FR201409010125

PATIENT
  Age: 57 Year
  Sex: Male

DRUGS (15)
  1. FLAGYL [Suspect]
     Active Substance: METRONIDAZOLE\METRONIDAZOLE HYDROCHLORIDE
     Indication: ANTIBIOTIC THERAPY
     Dosage: 500 MG, TID
     Route: 042
     Dates: start: 20140831, end: 20140901
  2. GENTAMICIN. [Suspect]
     Active Substance: GENTAMICIN
     Indication: ANTIBIOTIC THERAPY
     Dosage: UNK
     Route: 042
     Dates: start: 20140831, end: 20140901
  3. DROPERIDOL. [Suspect]
     Active Substance: DROPERIDOL
     Indication: PRODUCT USED FOR UNKNOWN INDICATION
     Dosage: 2.5 MG, QD
     Route: 042
     Dates: start: 20140831, end: 20140901
  4. TOPALGIC                           /00599202/ [Suspect]
     Active Substance: TRAMADOL
     Indication: CHEST PAIN
     Dosage: 50 MG, QID
     Route: 042
     Dates: start: 20140831, end: 201409
  5. PANTOPRAZOLE [Suspect]
     Active Substance: PANTOPRAZOLE SODIUM
     Indication: PRODUCT USED FOR UNKNOWN INDICATION
     Dosage: 40 MG, QD
     Route: 042
     Dates: start: 20140831, end: 20140901
  6. NEFOPAM [Suspect]
     Active Substance: NEFOPAM
     Indication: CHEST PAIN
     Dosage: 20 MG, OTHER
     Route: 042
     Dates: start: 20140831, end: 20140901
  7. IPRATROPIUM [Suspect]
     Active Substance: IPRATROPIUM
     Indication: PRODUCT USED FOR UNKNOWN INDICATION
     Dosage: 0.5 MG, TID
     Route: 045
     Dates: start: 20140831, end: 20140903
  8. SALBUTAMOL [Suspect]
     Active Substance: ALBUTEROL
     Indication: PRODUCT USED FOR UNKNOWN INDICATION
     Dosage: 5 MG, QD
     Route: 045
     Dates: start: 20140831, end: 20140901
  9. ROCEPHINE [Concomitant]
     Active Substance: CEFTRIAXONE SODIUM
     Dosage: 1 G, QD
     Route: 042
     Dates: start: 20140831
  10. PARACETAMOL [Suspect]
     Active Substance: ACETAMINOPHEN
     Indication: CHEST PAIN
     Dosage: 1 G, QID
     Route: 042
     Dates: start: 20140831, end: 201409
  11. HUMALOG [Suspect]
     Active Substance: INSULIN LISPRO
     Indication: PRODUCT USED FOR UNKNOWN INDICATION
     Dosage: UNK
     Route: 058
     Dates: start: 20140901, end: 201409
  12. AZANTAC [Concomitant]
     Active Substance: RANITIDINE HYDROCHLORIDE
     Dosage: 50 MG, BID
     Route: 042
     Dates: start: 20140901
  13. LOVENOX [Concomitant]
     Active Substance: ENOXAPARIN SODIUM
     Dosage: 6000 IU, QD
     Route: 058
     Dates: start: 20140831
  14. ROVAMYCINE                         /00074401/ [Suspect]
     Active Substance: SPIRAMYCIN
     Indication: ANTIBIOTIC THERAPY
     Dosage: 1.5 MILLION IU, TID
     Route: 042
     Dates: start: 20140901, end: 20140902
  15. AUGMENTIN [Suspect]
     Active Substance: AMOXICILLIN\CLAVULANATE POTASSIUM
     Indication: LUNG DISORDER
     Dosage: 1 G, TID
     Route: 048
     Dates: start: 20140828, end: 20140830

REACTIONS (6)
  - Erythema multiforme [Recovered/Resolved]
  - Alanine aminotransferase increased [Unknown]
  - Paraesthesia oral [Not Recovered/Not Resolved]
  - Blood alkaline phosphatase increased [Unknown]
  - Swelling [Not Recovered/Not Resolved]
  - Aspartate aminotransferase increased [Unknown]

NARRATIVE: CASE EVENT DATE: 20140901
